FAERS Safety Report 23049938 (Version 2)
Quarter: 2023Q4

REPORT INFORMATION
  Report Type: Report from Study
  Country: KP (occurrence: KR)
  Receive Date: 20231010
  Receipt Date: 20231011
  Transmission Date: 20240109
  Serious: Yes (Other)
  Sender: FDA-Public Use
  Company Number: KP-009507513-2309KOR005295

PATIENT
  Sex: Female

DRUGS (7)
  1. PEMBROLIZUMAB [Suspect]
     Active Substance: PEMBROLIZUMAB
     Indication: Endometrial cancer
     Dosage: QUANTITY:2, DAYS:1
     Dates: start: 20230810, end: 20230810
  2. PEMBROLIZUMAB [Suspect]
     Active Substance: PEMBROLIZUMAB
     Dosage: QUANTITY:2, DAYS:1
     Dates: start: 20230901, end: 20230901
  3. PEMBROLIZUMAB [Suspect]
     Active Substance: PEMBROLIZUMAB
     Dosage: QUANTITY:2, DAYS:1
     Dates: start: 20230922, end: 20230922
  4. LENVATINIB MESYLATE [Suspect]
     Active Substance: LENVATINIB MESYLATE
     Indication: Endometrial cancer
     Dosage: LENVIMA CAP 10MG; QUANTITY:2, DAYS:22
     Route: 048
     Dates: start: 20230810, end: 20230810
  5. LENVATINIB MESYLATE [Suspect]
     Active Substance: LENVATINIB MESYLATE
     Dosage: LENVIMA CAP 4MG; QUANTITY:1, DAYS:21
     Route: 048
     Dates: start: 20230901, end: 20230901
  6. LENVATINIB MESYLATE [Suspect]
     Active Substance: LENVATINIB MESYLATE
     Dosage: LENVIMA CAP 10MG; QUANTITY:1, DAYS:21
     Route: 048
     Dates: start: 20230901, end: 20230901
  7. LENVATINIB MESYLATE [Suspect]
     Active Substance: LENVATINIB MESYLATE
     Dosage: LENVIMA CAP 10MG; QUANTITY:1, DAYS:14
     Route: 048
     Dates: start: 20230922, end: 20230922

REACTIONS (3)
  - Platelet transfusion [Unknown]
  - Product use issue [Unknown]
  - Product use issue [Unknown]

NARRATIVE: CASE EVENT DATE: 20230901
